FAERS Safety Report 20997360 (Version 1)
Quarter: 2022Q2

REPORT INFORMATION
  Report Type: Spontaneous
  Country: US (occurrence: US)
  Receive Date: 20220623
  Receipt Date: 20220623
  Transmission Date: 20220721
  Serious: Yes (Life-Threatening, Other)
  Sender: FDA-Public Use
  Company Number: US-ALKEM LABORATORIES LIMITED-US-ALKEM-2022-01057

PATIENT
  Age: 8 Year
  Sex: Male

DRUGS (2)
  1. AMLODIPINE BESYLATE [Suspect]
     Active Substance: AMLODIPINE BESYLATE
     Indication: Blood pressure abnormal
     Dosage: UNK
     Route: 045
  2. NICARDIPINE [Suspect]
     Active Substance: NICARDIPINE
     Indication: Blood pressure abnormal
     Dosage: UNK
     Route: 065

REACTIONS (1)
  - Angioedema [Unknown]
